FAERS Safety Report 8873063 (Version 1)
Quarter: 2012Q4

REPORT INFORMATION
  Report Type: 
  Country: CA (occurrence: CA)
  Receive Date: 20121029
  Receipt Date: 20121029
  Transmission Date: 20130627
  Serious: Yes (Hospitalization)
  Sender: FDA-Public Use
  Company Number: CA-AMGEN-CANSP2012060944

PATIENT
  Age: 20 Year
  Sex: Female

DRUGS (5)
  1. ENBREL [Suspect]
     Indication: ANKYLOSING SPONDYLITIS
     Dosage: 50 mg, qwk
     Route: 058
     Dates: start: 20120208
  2. CHAMPIX [Suspect]
     Indication: ASTHENIA
     Dosage: UNK
     Route: 048
     Dates: start: 20120901, end: 20120910
  3. CHAMPIX [Suspect]
     Indication: DIZZINESS
  4. CHANTIX [Concomitant]
     Dosage: UNK
  5. CELEBREX [Concomitant]
     Dosage: 200 mg, qd

REACTIONS (6)
  - Hypotension [Recovered/Resolved]
  - Asthenia [Unknown]
  - Dizziness [Unknown]
  - White blood cell count decreased [Unknown]
  - Viral infection [Unknown]
  - Weight decreased [Unknown]
